FAERS Safety Report 25462964 (Version 2)
Quarter: 2025Q3

REPORT INFORMATION
  Report Type: Report from Study
  Country: US (occurrence: US)
  Receive Date: 20250620
  Receipt Date: 20250728
  Transmission Date: 20251020
  Serious: Yes (Other)
  Sender: ACADIA PHARMACEUTICALS
  Company Number: US-ACADIA PHARMACEUTICALS INC.-ACA-2025-PIM-007322

PATIENT
  Age: 71 Year
  Sex: Male

DRUGS (8)
  1. NUPLAZID [Suspect]
     Active Substance: PIMAVANSERIN TARTRATE
     Indication: Parkinson^s disease psychosis
     Dosage: 34 MILLIGRAM, QD
     Route: 048
     Dates: start: 20250423, end: 20250701
  2. MIRTAZAPINE [Concomitant]
     Active Substance: MIRTAZAPINE
  3. VENLAFAXINE [Concomitant]
     Active Substance: VENLAFAXINE HYDROCHLORIDE
  4. CLONAZEPAM [Concomitant]
     Active Substance: CLONAZEPAM
  5. CREXONT [Concomitant]
     Active Substance: CARBIDOPA\LEVODOPA
  6. SINEMET [Concomitant]
     Active Substance: CARBIDOPA\LEVODOPA
  7. QUETIAPINE [Concomitant]
     Active Substance: QUETIAPINE
  8. IBUPROFEN [Concomitant]
     Active Substance: IBUPROFEN

REACTIONS (4)
  - Hallucination [Not Recovered/Not Resolved]
  - Delusion [Not Recovered/Not Resolved]
  - Product dose omission issue [Not Recovered/Not Resolved]
  - Drug ineffective [Not Recovered/Not Resolved]

NARRATIVE: CASE EVENT DATE: 20250701
